FAERS Safety Report 24412062 (Version 1)
Quarter: 2024Q4

REPORT INFORMATION
  Report Type: Spontaneous
  Country: US (occurrence: None)
  Receive Date: 20241007
  Receipt Date: 20241007
  Transmission Date: 20250114
  Serious: No
  Sender: Public
  Company Number: None

PATIENT
  Age: 7 Year
  Sex: Male
  Weight: 24.57 kg

DRUGS (1)
  1. YCANTH [Suspect]
     Active Substance: CANTHARIDIN
     Indication: Molluscum contagiosum
     Route: 061
     Dates: start: 20240919, end: 20240919

REACTIONS (3)
  - Application site pain [None]
  - Application site vesicles [None]
  - Wound [None]

NARRATIVE: CASE EVENT DATE: 20240919
